FAERS Safety Report 4336492-6 (Version None)
Quarter: 2004Q2

REPORT INFORMATION
  Report Type: 
  Country: None (occurrence: None)
  Receive Date: 20040409
  Receipt Date: 20040409
  Transmission Date: 20050107
  Serious: Yes (Life-Threatening, Disabling)
  Sender: FDA-Public Use
  Company Number: None

PATIENT
  Age: 16 Year
  Sex: Female
  Weight: 77.1115 kg

DRUGS (2)
  1. TOBRAMYCIN [Suspect]
     Indication: OSTEOMYELITIS
     Dosage: 3 X ' ' S   90 DAYS   IV
     Route: 042
     Dates: start: 20031112, end: 20040221
  2. TIMENTIN [Suspect]
     Indication: OSTEOMYELITIS
     Dosage: 4 X ' ' S  90 DAYS    IV
     Route: 042
     Dates: start: 20031112, end: 20040221

REACTIONS (5)
  - CEREBROVASCULAR ACCIDENT [None]
  - FEAR [None]
  - HEADACHE [None]
  - VISION BLURRED [None]
  - VISUAL FIELD DEFECT [None]
